FAERS Safety Report 11246936 (Version 2)
Quarter: 2015Q3

REPORT INFORMATION
  Report Type: Spontaneous
  Country: US (occurrence: US)
  Receive Date: 20150708
  Receipt Date: 20150910
  Transmission Date: 20151125
  Serious: No
  Sender: FDA-Public Use
  Company Number: US-009507513-1506USA013141

PATIENT
  Age: 45 Year
  Sex: Female

DRUGS (2)
  1. DULERA [Suspect]
     Active Substance: FORMOTEROL FUMARATE DIHYDRATE\MOMETASONE FUROATE
     Dosage: SWITCHED TO A NEW DULERA UNIT, TWO SPRAYS TWICE A DAY (2 DF, BID)
     Route: 055
     Dates: start: 201505
  2. DULERA [Suspect]
     Active Substance: FORMOTEROL FUMARATE DIHYDRATE\MOMETASONE FUROATE
     Indication: ASTHMA
     Dosage: TWO SPRAYS TWICE A DAY (2 DF, BID), WAS NOT GETTING A FULL DOSE
     Route: 055
     Dates: end: 201505

REACTIONS (3)
  - Dyspnoea [Recovered/Resolved]
  - Underdose [Recovered/Resolved]
  - Product quality issue [Unknown]

NARRATIVE: CASE EVENT DATE: 201505
